FAERS Safety Report 18148443 (Version 3)
Quarter: 2020Q3

REPORT INFORMATION
  Report Type: Spontaneous
  Country: US (occurrence: US)
  Receive Date: 20200813
  Receipt Date: 20200917
  Transmission Date: 20201103
  Serious: Yes (Other)
  Sender: FDA-Public Use
  Company Number: US-JNJFOC-20200747590

PATIENT
  Age: 52 Year
  Sex: Female

DRUGS (2)
  1. TREMFYA [Suspect]
     Active Substance: GUSELKUMAB
     Indication: PSORIASIS
  2. TREMFYA [Suspect]
     Active Substance: GUSELKUMAB
     Indication: RHEUMATOID ARTHRITIS
     Route: 065

REACTIONS (4)
  - Drug delivery system malfunction [Unknown]
  - Psoriasis [Unknown]
  - Rheumatoid arthritis [Unknown]
  - Underdose [Unknown]

NARRATIVE: CASE EVENT DATE: 2020
